FAERS Safety Report 19710040 (Version 1)
Quarter: 2021Q3

REPORT INFORMATION
  Report Type: Spontaneous
  Country: FR (occurrence: FR)
  Receive Date: 20210817
  Receipt Date: 20210817
  Transmission Date: 20211014
  Serious: Yes (Other)
  Sender: FDA-Public Use
  Company Number: FR-GLAXOSMITHKLINE-FR2020EME166327

PATIENT
  Age: 52 Year
  Sex: Female

DRUGS (1)
  1. BENLYSTA [Suspect]
     Active Substance: BELIMUMAB
     Indication: SYSTEMIC LUPUS ERYTHEMATOSUS
     Dosage: UNK, 200 MG
     Route: 042

REACTIONS (7)
  - Arthralgia [Unknown]
  - Systemic lupus erythematosus [Unknown]
  - Temperature intolerance [Unknown]
  - Dizziness [Unknown]
  - Peripheral swelling [Unknown]
  - Pain in extremity [Unknown]
  - Dysstasia [Unknown]

NARRATIVE: CASE EVENT DATE: 202102
